FAERS Safety Report 5033749-0 (Version None)
Quarter: 2006Q2

REPORT INFORMATION
  Report Type: 
  Country: None (occurrence: None)
  Receive Date: 20060623
  Receipt Date: 20060523
  Transmission Date: 20061013
  Serious: Yes (Hospitalization)
  Sender: FDA-Public Use
  Company Number: FR-BRISTOL-MYERS SQUIBB COMPANY-13387907

PATIENT
  Age: 54 Year
  Sex: Female

DRUGS (5)
  1. REYATAZ [Suspect]
     Indication: HIV INFECTION
     Route: 048
     Dates: start: 20050101
  2. NORVIR [Concomitant]
     Indication: HIV INFECTION
     Dates: end: 20060428
  3. ZIAGEN [Concomitant]
  4. VIREAD [Concomitant]
  5. LEVOTHYROX [Concomitant]

REACTIONS (3)
  - NEPHROLITHIASIS [None]
  - RENAL COLIC [None]
  - RENAL FAILURE [None]
